FAERS Safety Report 12278733 (Version 1)
Quarter: 2016Q2

REPORT INFORMATION
  Report Type: Spontaneous
  Country: DZ (occurrence: DZ)
  Receive Date: 20160418
  Receipt Date: 20160418
  Transmission Date: 20160815
  Serious: Yes (Death, Other)
  Sender: FDA-Public Use
  Company Number: DZ-ASTRAZENECA-2016SE40135

PATIENT
  Sex: Female

DRUGS (7)
  1. PRAVASTATIN [Concomitant]
     Active Substance: PRAVASTATIN\PRAVASTATIN SODIUM
  2. PERFALGAN PERFUSION [Concomitant]
  3. PARACETAMOL CODEINE [Concomitant]
     Active Substance: ACETAMINOPHEN\CODEINE PHOSPHATE
  4. DUPHALAC [Concomitant]
     Active Substance: LACTULOSE
  5. NACL [Concomitant]
     Active Substance: SODIUM CHLORIDE
     Dosage: PERFUSION
  6. MOPRAL [Suspect]
     Active Substance: OMEPRAZOLE SODIUM
     Indication: GASTRIC ULCER
     Route: 048
  7. ALBUMINE PERF [Concomitant]

REACTIONS (3)
  - Death [Fatal]
  - Metastatic gastric cancer [Unknown]
  - Metastases to large intestine [Unknown]

NARRATIVE: CASE EVENT DATE: 20160214
